FAERS Safety Report 10901770 (Version 1)
Quarter: 2015Q1

REPORT INFORMATION
  Report Type: Spontaneous
  Country: CA (occurrence: CA)
  Receive Date: 20150310
  Receipt Date: 20150310
  Transmission Date: 20150721
  Serious: Yes (Other)
  Sender: FDA-Public Use
  Company Number: CA-TEVA-545982ACC

PATIENT
  Sex: Male

DRUGS (19)
  1. PNEUMOVAX 23 SINGLE DOSE [Concomitant]
     Dosage: UNKNOWN FORM STRENGTH
     Route: 030
  2. REPAGLINIDE. [Concomitant]
     Active Substance: REPAGLINIDE
     Dosage: UNKNOWN FORM STRENGTH
     Route: 065
  3. METOPROLOL [Suspect]
     Active Substance: METOPROLOL
     Indication: BLOOD PRESSURE
  4. TYLENOL WITH CODEINE NO 3  TAB [Concomitant]
     Dosage: UNKNOWN FORM STRENGTH
     Route: 065
  5. METOPROLOL [Suspect]
     Active Substance: METOPROLOL
     Indication: MYOCARDIAL ISCHAEMIA
     Dosage: 200 MILLIGRAM DAILY;
     Route: 048
  6. DETROL LA [Concomitant]
     Active Substance: TOLTERODINE TARTRATE
     Dosage: UNKNOWN FORM STRENGTH
     Route: 065
  7. PLAVIX [Concomitant]
     Active Substance: CLOPIDOGREL BISULFATE
     Dosage: UNKNOWN FORM STRENGTH
     Route: 065
  8. APO-FENOFIBRATE [Concomitant]
     Dosage: UNKNOWN FORM STRENGTH
     Route: 065
  9. NORVASC [Concomitant]
     Active Substance: AMLODIPINE BESYLATE
     Dosage: UNKNOWN FORM STRENGTH
     Route: 065
  10. TD ADSORBED [Concomitant]
     Dosage: UNKNOWN FORM STRENGTH
     Route: 030
  11. ASA [Concomitant]
     Active Substance: ASPIRIN
     Dosage: UNKNOWN FORM STRENGTH
     Route: 065
  12. FLOMAX [Concomitant]
     Active Substance: TAMSULOSIN HYDROCHLORIDE
     Dosage: UNKNOWN FORM STRENGTH
     Route: 065
  13. FUCIDIN CREAM 2 PERCENT [Concomitant]
     Dosage: UNKNOWN FORM STRENGTH
     Route: 065
  14. NOVOMIX 30 [Concomitant]
     Active Substance: INSULIN ASPART
     Dosage: UNKNOWN FORM STRENGTH
     Route: 058
  15. APO METOPROLOL [Concomitant]
     Dosage: UNKNOWN FORM STRENGTH
     Route: 065
  16. ONE TOUCH TOPICAL ANESTHETIC GEL [Concomitant]
     Dosage: UNKNOWN FORM STRENGTH
     Route: 061
  17. RAMIPRIL. [Concomitant]
     Active Substance: RAMIPRIL
     Dosage: UNKNOWN FORM STRENGTH
     Route: 065
  18. TEMAZEPAM. [Concomitant]
     Active Substance: TEMAZEPAM
     Dosage: UNKNOWN FORM STRENGTH
     Route: 065
  19. VAXIGRIP [Concomitant]
     Active Substance: INFLUENZA VIRUS VACCINE
     Dosage: UNKNOWN FORM STRENGTH
     Route: 030

REACTIONS (2)
  - Activities of daily living impaired [Recovered/Resolved]
  - Arthralgia [Recovered/Resolved]
